FAERS Safety Report 9155672 (Version 1)
Quarter: 2013Q1

REPORT INFORMATION
  Report Type: Spontaneous
  Country: JP (occurrence: JP)
  Receive Date: 20130311
  Receipt Date: 20130311
  Transmission Date: 20140127
  Serious: Yes (Other)
  Sender: FDA-Public Use
  Company Number: PHHY2013JP021437

PATIENT
  Sex: Female

DRUGS (1)
  1. CEFEPIME HYDROCHLORIDE [Suspect]
     Route: 042

REACTIONS (2)
  - Jaundice [Unknown]
  - Bilirubin conjugated increased [Unknown]
